FAERS Safety Report 8696180 (Version 5)
Quarter: 2012Q4

REPORT INFORMATION
  Report Type: Report from Study
  Country: US (occurrence: None)
  Receive Date: 20120716
  Receipt Date: 20120924
  Transmission Date: 20130627
  Serious: Yes (Hospitalization)
  Sender: FDA-Public Use
  Company Number: US-JNJFOC-20120516562

PATIENT
  Age: 65 Year
  Sex: Female
  Weight: 62 kg

DRUGS (6)
  1. DECITABINE [Suspect]
     Indication: ACUTE MYELOID LEUKAEMIA
     Route: 042
     Dates: start: 20120330, end: 20120408
  2. DECITABINE [Suspect]
     Indication: ACUTE MYELOID LEUKAEMIA
     Route: 042
  3. DECITABINE [Suspect]
     Indication: ACUTE MYELOID LEUKAEMIA
     Route: 042
     Dates: start: 20120529
  4. BORTEZOMIB [Suspect]
     Indication: ACUTE MYELOID LEUKAEMIA
     Route: 058
     Dates: start: 20120329, end: 20120408
  5. BORTEZOMIB [Suspect]
     Indication: ACUTE MYELOID LEUKAEMIA
     Route: 058
  6. BORTEZOMIB [Suspect]
     Indication: ACUTE MYELOID LEUKAEMIA
     Route: 058
     Dates: start: 20120529

REACTIONS (12)
  - Pain in extremity [None]
  - Arthralgia [None]
  - Gait disturbance [None]
  - Insomnia [None]
  - Platelet count decreased [None]
  - Febrile neutropenia [None]
  - Dizziness [None]
  - Paraesthesia [None]
  - Streptococcal bacteraemia [None]
  - Chills [None]
  - Vision blurred [None]
  - Pain in extremity [None]
